FAERS Safety Report 19950813 (Version 1)
Quarter: 2021Q4

REPORT INFORMATION
  Report Type: Spontaneous
  Country: PT (occurrence: PT)
  Receive Date: 20211013
  Receipt Date: 20211013
  Transmission Date: 20220303
  Serious: Yes (Other)
  Sender: FDA-Public Use
  Company Number: PT-FRESENIUS KABI-FK202110983

PATIENT
  Age: 26 Year
  Sex: Female

DRUGS (1)
  1. PHENYLEPHRINE HYDROCHLORIDE [Suspect]
     Active Substance: PHENYLEPHRINE HYDROCHLORIDE
     Indication: Spinal anaesthesia
     Route: 050

REACTIONS (5)
  - Incorrect dose administered [Recovered/Resolved]
  - Product preparation issue [Recovered/Resolved]
  - Pulmonary haemorrhage [Recovered/Resolved]
  - Pulmonary oedema [Recovered/Resolved]
  - Exposure during pregnancy [Recovered/Resolved]
